FAERS Safety Report 8541584-1 (Version None)
Quarter: 2012Q3

REPORT INFORMATION
  Report Type: 
  Country: None (occurrence: None)
  Receive Date: 20120726
  Receipt Date: 20111006
  Transmission Date: 20120928
  Serious: No
  Sender: FDA-Public Use
  Company Number: US-ASTRAZENECA-2011SE56326

PATIENT
  Age: 18103 Day
  Sex: Female
  Weight: 56.7 kg

DRUGS (5)
  1. SEROQUEL XR [Suspect]
     Indication: DEPRESSION
     Route: 048
     Dates: start: 20090101
  2. LAXATIN [Concomitant]
  3. SEROQUEL XR [Suspect]
     Indication: SLEEP DISORDER
     Route: 048
     Dates: start: 20090101
  4. IBUPROFEN [Concomitant]
  5. XANAX [Concomitant]

REACTIONS (8)
  - PANIC ATTACK [None]
  - CONDITION AGGRAVATED [None]
  - FOOT FRACTURE [None]
  - OFF LABEL USE [None]
  - SOCIAL FEAR [None]
  - FALL [None]
  - PAIN [None]
  - OEDEMA PERIPHERAL [None]
